FAERS Safety Report 14271133 (Version 1)
Quarter: 2017Q4

REPORT INFORMATION
  Report Type: Spontaneous
  Country: FR (occurrence: FR)
  Receive Date: 20171211
  Receipt Date: 20171211
  Transmission Date: 20180321
  Serious: Yes (Other)
  Sender: FDA-Public Use
  Company Number: FR-OTSUKA-J20120347

PATIENT
  Sex: Female

DRUGS (5)
  1. LEPONEX [Suspect]
     Active Substance: CLOZAPINE
     Indication: BIPOLAR DISORDER
     Dosage: 300 MG, UNK
     Route: 065
     Dates: start: 20110107, end: 20110921
  2. DEPAKOTE [Suspect]
     Active Substance: DIVALPROEX SODIUM
     Indication: BIPOLAR DISORDER
     Dosage: 1 G, QD
     Route: 065
     Dates: start: 20110107, end: 20110127
  3. ABILIFY [Suspect]
     Active Substance: ARIPIPRAZOLE
     Indication: BIPOLAR DISORDER
     Dosage: 15 MG, UNK
     Route: 065
     Dates: start: 20110107, end: 20110921
  4. CLONAZEPAM. [Suspect]
     Active Substance: CLONAZEPAM
     Indication: BIPOLAR DISORDER
     Dosage: UNK
     Route: 065
     Dates: start: 20110107, end: 201105
  5. RIVOTRIL [Suspect]
     Active Substance: CLONAZEPAM
     Indication: BIPOLAR DISORDER
     Dosage: UNK
     Route: 065
     Dates: start: 20110107, end: 201105

REACTIONS (4)
  - Maternal exposure during pregnancy [Unknown]
  - Caesarean section [Unknown]
  - Gestational diabetes [Unknown]
  - Live birth [Unknown]

NARRATIVE: CASE EVENT DATE: 2011
